FAERS Safety Report 15551909 (Version 4)
Quarter: 2021Q1

REPORT INFORMATION
  Report Type: Report from Study
  Country: US (occurrence: US)
  Receive Date: 20181025
  Receipt Date: 20210323
  Transmission Date: 20210419
  Serious: Yes (Death, Hospitalization, Other)
  Sender: FDA-Public Use
  Company Number: US-SA-2018SA292492

PATIENT
  Age: 46 Year
  Sex: Male

DRUGS (2)
  1. ALEMTUZUMAB [Suspect]
     Active Substance: ALEMTUZUMAB
     Dosage: 12 MG, QD
     Route: 041
     Dates: start: 20160328, end: 20160401
  2. ALEMTUZUMAB [Suspect]
     Active Substance: ALEMTUZUMAB
     Indication: MULTIPLE SCLEROSIS
     Dosage: 12 MG, QD
     Route: 041
     Dates: end: 20170405

REACTIONS (5)
  - Immune system disorder [Unknown]
  - Death [Fatal]
  - White blood cell count decreased [Unknown]
  - Platelet count abnormal [Unknown]
  - Platelet count decreased [Not Recovered/Not Resolved]
